FAERS Safety Report 10518254 (Version 1)
Quarter: 2014Q4

REPORT INFORMATION
  Report Type: Spontaneous
  Country: US (occurrence: None)
  Receive Date: 20141014
  Receipt Date: 20141014
  Transmission Date: 20150528
  Serious: Yes (Hospitalization)
  Sender: FDA-Public Use
  Company Number: None

PATIENT
  Age: 72 Year
  Sex: Male
  Weight: 72 kg

DRUGS (1)
  1. NICOTINE. [Suspect]
     Active Substance: NICOTINE
     Indication: TOBACCO ABUSE
     Dates: start: 20140723, end: 20140910

REACTIONS (3)
  - Dyspnoea [None]
  - Rash [None]
  - Hypoaesthesia [None]

NARRATIVE: CASE EVENT DATE: 20140910
